FAERS Safety Report 9588470 (Version 1)
Quarter: 2013Q4

REPORT INFORMATION
  Report Type: Spontaneous
  Country: US (occurrence: US)
  Receive Date: 20131003
  Receipt Date: 20131003
  Transmission Date: 20140711
  Serious: No
  Sender: FDA-Public Use
  Company Number: US-AMGEN-USASP2012064065

PATIENT
  Sex: Female

DRUGS (12)
  1. ENBREL [Suspect]
     Indication: RHEUMATOID ARTHRITIS
     Dosage: 50 MG, QWK
     Route: 058
  2. FLEXERIL                           /00821801/ [Concomitant]
     Dosage: 10 MG, UNK
  3. COZAAR [Concomitant]
     Dosage: 50 MG, UNK
  4. XANAX [Concomitant]
     Dosage: 0.25 MG, UNK
  5. PLAQUENIL                          /00072603/ [Concomitant]
     Dosage: 200 MG, UNK
  6. AMARYL [Concomitant]
     Dosage: 1 MG, UNK
  7. INDERAL LA [Concomitant]
     Dosage: 120 MG, UNK
  8. MELOXICAM [Concomitant]
     Dosage: 7.5 MG, UNK
  9. METHOTREXATE [Concomitant]
     Dosage: 2.5 MG, UNK
  10. GLYBURIDE [Concomitant]
     Dosage: 1.25 MG, UNK
  11. HYDRALAZINE [Concomitant]
     Dosage: 10 MG, UNK
  12. OPANA [Concomitant]
     Dosage: 5 MG, UNK

REACTIONS (5)
  - Urinary tract infection [Unknown]
  - Limb deformity [Unknown]
  - Nodule [Unknown]
  - Pain [Unknown]
  - Bladder disorder [Unknown]
